FAERS Safety Report 6611630-0 (Version None)
Quarter: 2010Q1

REPORT INFORMATION
  Report Type: 
  Country: None (occurrence: None)
  Receive Date: 20100303
  Receipt Date: 20100219
  Transmission Date: 20100710
  Serious: Yes (Other)
  Sender: FDA-Public Use
  Company Number: PHEH2010US02681

PATIENT
  Sex: Female

DRUGS (1)
  1. EXJADE [Suspect]
     Indication: IRON OVERLOAD
     Dosage: UNK
     Dates: start: 20091106

REACTIONS (4)
  - ABDOMINAL DISCOMFORT [None]
  - APLASTIC ANAEMIA [None]
  - GASTROOESOPHAGEAL REFLUX DISEASE [None]
  - RETCHING [None]
